FAERS Safety Report 16549729 (Version 4)
Quarter: 2019Q3

REPORT INFORMATION
  Report Type: Report from Study
  Country: US (occurrence: US)
  Receive Date: 20190710
  Receipt Date: 20190802
  Transmission Date: 20191004
  Serious: No
  Sender: FDA-Public Use
  Company Number: US-JNJFOC-20190121384

PATIENT
  Age: 55 Year
  Sex: Male

DRUGS (10)
  1. IMBRUVICA [Suspect]
     Active Substance: IBRUTINIB
     Indication: CHRONIC LYMPHOCYTIC LEUKAEMIA
     Dosage: 2520 MG CUMULATIVE DOSAGE
     Route: 048
     Dates: start: 20190103
  2. IMBRUVICA [Suspect]
     Active Substance: IBRUTINIB
     Indication: LYMPHADENOPATHY
     Dosage: 2520 MG CUMULATIVE DOSAGE
     Route: 048
     Dates: start: 20190615, end: 20190617
  3. PRAVASTATIN SODIUM. [Concomitant]
     Active Substance: PRAVASTATIN SODIUM
  4. AMLODIPINE BESYLATE. [Concomitant]
     Active Substance: AMLODIPINE BESYLATE
  5. METFORMIN HCL [Concomitant]
     Active Substance: METFORMIN HYDROCHLORIDE
  6. PRAVASTATIN. [Concomitant]
     Active Substance: PRAVASTATIN
  7. LISINOPRIL. [Concomitant]
     Active Substance: LISINOPRIL
  8. OMEPRAZOLE. [Concomitant]
     Active Substance: OMEPRAZOLE
  9. TYLENOL [Concomitant]
     Active Substance: ACETAMINOPHEN
  10. IMBRUVICA [Suspect]
     Active Substance: IBRUTINIB
     Indication: NON-HODGKIN^S LYMPHOMA
     Dosage: 2520 MG CUMULATIVE DOSAGE NUMBER
     Route: 048
     Dates: start: 20190104, end: 20190614

REACTIONS (17)
  - Sneezing [Unknown]
  - Affective disorder [Unknown]
  - Incorrect dose administered [Unknown]
  - Bone pain [Unknown]
  - Nasopharyngitis [Unknown]
  - Pain [Unknown]
  - Dry mouth [Unknown]
  - Musculoskeletal chest pain [Unknown]
  - Rhinorrhoea [Not Recovered/Not Resolved]
  - Headache [Recovered/Resolved]
  - Off label use [Unknown]
  - Muscle spasms [Unknown]
  - Arthritis [Unknown]
  - Anger [Unknown]
  - Fatigue [Unknown]
  - Back pain [Unknown]
  - Contusion [Unknown]

NARRATIVE: CASE EVENT DATE: 201901
